FAERS Safety Report 8429267-X (Version None)
Quarter: 2012Q2

REPORT INFORMATION
  Report Type: 
  Country: None (occurrence: None)
  Receive Date: 20120612
  Receipt Date: 20120608
  Transmission Date: 20120825
  Serious: Yes (Death, Life-Threatening, Hospitalization, Congenital Anomaly, Other)
  Sender: FDA-Public Use
  Company Number: PHHY2012DE046909

PATIENT
  Sex: Male
  Weight: 1.494 kg

DRUGS (5)
  1. DIOVAN [Suspect]
     Indication: HYPERTENSION
     Dosage: 80 MG PER DAY
     Route: 064
     Dates: start: 20090622, end: 20091112
  2. CELESTAN SOLUBILE [Concomitant]
     Indication: MATERNAL THERAPY TO ENHANCE FOETAL LUNG MATURITY
     Dosage: UNK
     Route: 064
     Dates: start: 20091109, end: 20091110
  3. TILIDINE [Concomitant]
     Indication: TRIGEMINAL NEURALGIA
     Dosage: UNK
     Route: 064
  4. NALOXONE [Concomitant]
     Indication: TRIGEMINAL NEURALGIA
     Route: 064
  5. BISOPROLOL FUMARATE [Concomitant]
     Indication: HYPERTENSION
     Dosage: 2.5 MG
     Route: 064
     Dates: start: 20090428, end: 20090621

REACTIONS (17)
  - PREMATURE BABY [None]
  - RENAL HYPERTENSION [None]
  - CARDIOPULMONARY FAILURE [None]
  - PULMONARY HYPOPLASIA [None]
  - RENAL IMPAIRMENT NEONATAL [None]
  - METABOLIC ACIDOSIS [None]
  - LOW BIRTH WEIGHT BABY [None]
  - NEONATAL RESPIRATORY FAILURE [None]
  - HYPOACUSIS [None]
  - HYPERPARATHYROIDISM SECONDARY [None]
  - PERITONITIS [None]
  - FOETAL EXPOSURE DURING PREGNANCY [None]
  - NEPHROGENIC ANAEMIA [None]
  - MECHANICAL VENTILATION COMPLICATION [None]
  - RENAL APLASIA [None]
  - NEONATAL ANURIA [None]
  - OEDEMA NEONATAL [None]
